FAERS Safety Report 12121366 (Version 1)
Quarter: 2016Q1

REPORT INFORMATION
  Report Type: Spontaneous
  Country: US (occurrence: US)
  Receive Date: 20160226
  Receipt Date: 20160226
  Transmission Date: 20160526
  Serious: No
  Sender: FDA-Public Use
  Company Number: US-ALLERGAN-1417806US

PATIENT
  Age: 89 Year
  Sex: Male

DRUGS (2)
  1. ICAPS [Concomitant]
     Active Substance: MINERALS\VITAMINS
  2. REFRESH OPTIVE [Suspect]
     Active Substance: CARBOXYMETHYLCELLULOSE SODIUM\GLYCERIN
     Indication: DRY EYE
     Dosage: UNK
     Dates: start: 201407, end: 20140811

REACTIONS (2)
  - Eye irritation [Unknown]
  - Foreign body sensation in eyes [Unknown]
